FAERS Safety Report 8224520-7 (Version None)
Quarter: 2012Q1

REPORT INFORMATION
  Report Type: 
  Country: None (occurrence: None)
  Receive Date: 20120321
  Receipt Date: 20120313
  Transmission Date: 20120608
  Serious: Yes (Other)
  Sender: FDA-Public Use
  Company Number: US-JNJFOC-20120308859

PATIENT

DRUGS (2)
  1. GEMCITABINE [Suspect]
     Indication: HEAD AND NECK CANCER
     Route: 042
  2. DOXORUBICIN HCL [Suspect]
     Indication: HEAD AND NECK CANCER
     Route: 042

REACTIONS (1)
  - HYPOPHOSPHATAEMIA [None]
